FAERS Safety Report 4817607-X (Version None)
Quarter: 2005Q4

REPORT INFORMATION
  Report Type: 
  Country: None (occurrence: None)
  Receive Date: 20051031
  Receipt Date: 20051017
  Transmission Date: 20060501
  Serious: Yes (Hospitalization)
  Sender: FDA-Public Use
  Company Number: 2005143764

PATIENT
  Age: 17 Year
  Sex: Female

DRUGS (2)
  1. NICORETTE [Suspect]
     Indication: TOBACCO WITHDRAWAL SYMPTOMS
     Dosage: 15MG/16H, TRANSERMAL
     Route: 062
     Dates: start: 20050829
  2. CITALOPRAM HYDROBROMIDE [Suspect]
     Dosage: 1 DOSE-FORM ONCE DAILY, ORAL
     Route: 048
     Dates: start: 20050905, end: 20050912

REACTIONS (6)
  - BLOOD PRESSURE INCREASED [None]
  - HYPERHIDROSIS [None]
  - MYDRIASIS [None]
  - PYREXIA [None]
  - TACHYCARDIA [None]
  - TREMOR [None]
